FAERS Safety Report 25517804 (Version 3)
Quarter: 2025Q3

REPORT INFORMATION
  Report Type: Report from Study
  Country: US (occurrence: US)
  Receive Date: 20250704
  Receipt Date: 20250810
  Transmission Date: 20251021
  Serious: Yes (Other)
  Sender: ALEXION PHARMACEUTICALS
  Company Number: US-AstraZeneca-CH-00897945A

PATIENT
  Sex: Male
  Weight: 84.14 kg

DRUGS (1)
  1. DURVALUMAB [Suspect]
     Active Substance: DURVALUMAB
     Indication: Gastric ulcer
     Route: 065

REACTIONS (5)
  - Secondary immunodeficiency [Unknown]
  - Iron deficiency anaemia [Unknown]
  - Hypertension [Unknown]
  - Dehydration [Unknown]
  - Hyponatraemia [Unknown]
